FAERS Safety Report 9100449 (Version 2)
Quarter: 2013Q1

REPORT INFORMATION
  Report Type: Spontaneous
  Country: US (occurrence: US)
  Receive Date: 20130215
  Receipt Date: 20130221
  Transmission Date: 20140127
  Serious: Yes (Death, Hospitalization)
  Sender: FDA-Public Use
  Company Number: PHEH2013US003840

PATIENT
  Age: 96 Year
  Sex: Female

DRUGS (4)
  1. RECLAST [Suspect]
     Indication: OSTEOPOROSIS
     Dosage: 5MG/100 ML
     Route: 042
     Dates: start: 20120331
  2. SIMVASTATIN [Concomitant]
     Dosage: 20 MG, QD
     Route: 048
  3. XANAX [Concomitant]
     Dosage: 0.75 MG, PRN
     Route: 048
  4. GABAPENTIN [Concomitant]
     Dosage: 100 MG, UNK
     Route: 048

REACTIONS (2)
  - Hyponatraemia [Fatal]
  - Streptococcal bacteraemia [Fatal]
